FAERS Safety Report 21762497 (Version 3)
Quarter: 2023Q1

REPORT INFORMATION
  Report Type: Spontaneous
  Country: US (occurrence: US)
  Receive Date: 20221221
  Receipt Date: 20230131
  Transmission Date: 20230417
  Serious: No
  Sender: FDA-Public Use
  Company Number: US-TEVA-2022-US-2836344

PATIENT
  Age: 58 Year
  Sex: Male

DRUGS (5)
  1. CARBIDOPA AND LEVODOPA [Suspect]
     Active Substance: CARBIDOPA\LEVODOPA
     Indication: Metal poisoning
     Dosage: FORM STRENGTH : 25-100 MG-MG
     Route: 065
  2. CARBIDOPA AND LEVODOPA [Suspect]
     Active Substance: CARBIDOPA\LEVODOPA
     Indication: Parkinson^s disease
  3. CARBIDOPA AND LEVODOPA [Suspect]
     Active Substance: CARBIDOPA\LEVODOPA
     Indication: Parkinson^s disease
     Dosage: FORM STRENGTH : 25-100 MG-MG?2 AND 1/2 TABLETS
     Route: 065
     Dates: start: 2012, end: 2019
  4. CARBIDOPA AND LEVODOPA [Suspect]
     Active Substance: CARBIDOPA\LEVODOPA
     Indication: Metal poisoning
     Dosage: 1 AND HALF TABLETS
     Route: 065
     Dates: start: 2019
  5. CARBIDOPA\LEVODOPA [Suspect]
     Active Substance: CARBIDOPA\LEVODOPA
     Indication: Metal poisoning
     Route: 065

REACTIONS (28)
  - Dry mouth [Unknown]
  - Dry eye [Unknown]
  - Bladder disorder [Unknown]
  - Prostatomegaly [Unknown]
  - Dysuria [Unknown]
  - Vision blurred [Not Recovered/Not Resolved]
  - Dyspnoea [Not Recovered/Not Resolved]
  - Muscle spasms [Not Recovered/Not Resolved]
  - Body temperature increased [Not Recovered/Not Resolved]
  - Salivary hypersecretion [Not Recovered/Not Resolved]
  - Pruritus [Not Recovered/Not Resolved]
  - Thinking abnormal [Not Recovered/Not Resolved]
  - Obsessive-compulsive disorder [Not Recovered/Not Resolved]
  - Gait inability [Not Recovered/Not Resolved]
  - Musculoskeletal stiffness [Not Recovered/Not Resolved]
  - Pain [Not Recovered/Not Resolved]
  - Back pain [Not Recovered/Not Resolved]
  - Abnormal behaviour [Not Recovered/Not Resolved]
  - Flatulence [Recovered/Resolved]
  - Rhinorrhoea [Unknown]
  - Pain in extremity [Unknown]
  - Tooth discolouration [Unknown]
  - Cerebral disorder [Unknown]
  - Mobility decreased [Unknown]
  - Muscle injury [Unknown]
  - Tooth loss [Unknown]
  - Intentional product use issue [Unknown]
  - Drug ineffective [Unknown]

NARRATIVE: CASE EVENT DATE: 20220101
